FAERS Safety Report 18785838 (Version 1)
Quarter: 2021Q1

REPORT INFORMATION
  Report Type: Report from Study
  Country: US (occurrence: US)
  Receive Date: 20210125
  Receipt Date: 20210125
  Transmission Date: 20210419
  Serious: Yes (Hospitalization, Other)
  Sender: FDA-Public Use
  Company Number: US-BRISTOL-MYERS SQUIBB COMPANY-BMS-2021-004855

PATIENT
  Sex: Female

DRUGS (2)
  1. NIVOLUMAB [Suspect]
     Active Substance: NIVOLUMAB
     Indication: MALIGNANT MELANOMA
     Dosage: UNK UNK, QMO
     Route: 065
     Dates: start: 20200115
  2. NIVOLUMAB [Suspect]
     Active Substance: NIVOLUMAB
     Dosage: UNK UNK, QMO
     Route: 065
     Dates: start: 202002

REACTIONS (15)
  - Muscle spasms [Unknown]
  - Muscular weakness [Unknown]
  - Malaise [Unknown]
  - Hypothyroidism [Unknown]
  - Myalgia [Unknown]
  - Colitis [Not Recovered/Not Resolved]
  - Tinnitus [Unknown]
  - Type 1 diabetes mellitus [Not Recovered/Not Resolved]
  - Neuropathy peripheral [Not Recovered/Not Resolved]
  - Back pain [Not Recovered/Not Resolved]
  - Arthralgia [Unknown]
  - Diabetic ketoacidosis [Unknown]
  - Heart rate increased [Unknown]
  - Seizure [Not Recovered/Not Resolved]
  - Diverticulitis [Not Recovered/Not Resolved]

NARRATIVE: CASE EVENT DATE: 20200317
